FAERS Safety Report 12062177 (Version 1)
Quarter: 2016Q1

REPORT INFORMATION
  Report Type: Spontaneous
  Country: US (occurrence: US)
  Receive Date: 20160210
  Receipt Date: 20160210
  Transmission Date: 20160526
  Serious: No
  Sender: FDA-Public Use
  Company Number: US-ALLERGAN-1507540US

PATIENT
  Age: 64 Year
  Sex: Female
  Weight: 79.37 kg

DRUGS (6)
  1. HORMONES [Concomitant]
     Active Substance: UNSPECIFIED INGREDIENT
     Indication: MENOPAUSE
  2. ANTIHYPERTENSIVES [Concomitant]
     Active Substance: UNSPECIFIED INGREDIENT
     Indication: HYPERTENSION
  3. CLARINEX [Concomitant]
     Active Substance: DESLORATADINE
     Indication: SEASONAL ALLERGY
  4. BOTOX COSMETIC [Suspect]
     Active Substance: ONABOTULINUMTOXINA
     Indication: SKIN WRINKLING
  5. BOTOX COSMETIC [Suspect]
     Active Substance: ONABOTULINUMTOXINA
     Indication: SKIN WRINKLING
     Dosage: 25 UNITS, SINGLE
     Route: 030
     Dates: start: 20150226, end: 20150226
  6. BOTOX COSMETIC [Suspect]
     Active Substance: ONABOTULINUMTOXINA
     Indication: SKIN WRINKLING
     Dosage: 5 UNITS, SINGLE
     Route: 030
     Dates: start: 20150226

REACTIONS (2)
  - Off label use [Unknown]
  - Headache [Recovered/Resolved]

NARRATIVE: CASE EVENT DATE: 20150226
